FAERS Safety Report 8571857-8 (Version None)
Quarter: 2012Q3

REPORT INFORMATION
  Report Type: 
  Country: None (occurrence: None)
  Receive Date: 20120806
  Receipt Date: 20120730
  Transmission Date: 20120928
  Serious: Yes (Life-Threatening)
  Sender: FDA-Public Use
  Company Number: DE-COVIDIEN/TYCO HEALTHCARE/MALLINCKRODT-T201202912

PATIENT
  Age: 48 Year
  Sex: Male
  Weight: 83 kg

DRUGS (1)
  1. OPTIRAY 160 [Suspect]
     Indication: ANGIOGRAM
     Dosage: 30 ML, SINGLE
     Route: 013
     Dates: start: 20120210, end: 20120210

REACTIONS (2)
  - CARDIAC ARREST [None]
  - APNOEA [None]
